FAERS Safety Report 12624513 (Version 2)
Quarter: 2016Q3

REPORT INFORMATION
  Report Type: Report from Study
  Country: US (occurrence: US)
  Receive Date: 20160805
  Receipt Date: 20160911
  Transmission Date: 20161109
  Serious: Yes (Other)
  Sender: FDA-Public Use
  Company Number: US-AMGEN-USASL2016100510

PATIENT
  Age: 37 Year
  Sex: Male

DRUGS (1)
  1. CARFILZOMIB [Suspect]
     Active Substance: CARFILZOMIB
     Indication: PLASMA CELL MYELOMA
     Dosage: UNK
     Route: 065

REACTIONS (6)
  - Musculoskeletal stiffness [Recovering/Resolving]
  - Epistaxis [Recovering/Resolving]
  - Muscle spasms [Recovering/Resolving]
  - Heart rate increased [Recovering/Resolving]
  - Fatigue [Recovering/Resolving]
  - Haemoglobin decreased [Recovering/Resolving]
